FAERS Safety Report 8859615 (Version 1)
Quarter: 2012Q4

REPORT INFORMATION
  Report Type: 
  Country: NL (occurrence: NL)
  Receive Date: 20121025
  Receipt Date: 20121025
  Transmission Date: 20130627
  Serious: Yes (Hospitalization)
  Sender: FDA-Public Use
  Company Number: NL-PFIZER INC-2012261860

PATIENT
  Sex: Female
  Weight: 68 kg

DRUGS (2)
  1. GENOTROPIN [Suspect]
     Dosage: 0.6 mg, 7/wk
     Route: 058
     Dates: start: 20091201
  2. HYDROCORTISON [Concomitant]
     Indication: ADRENAL INSUFFICIENCY
     Dosage: UNK
     Dates: start: 20030320

REACTIONS (1)
  - Ovarian disorder [Unknown]
